FAERS Safety Report 26047361 (Version 1)
Quarter: 2025Q4

REPORT INFORMATION
  Report Type: Spontaneous
  Country: US (occurrence: US)
  Receive Date: 20251114
  Receipt Date: 20251114
  Transmission Date: 20260117
  Serious: No
  Sender: ABBVIE
  Company Number: US-ABBVIE-6543397

PATIENT
  Age: 73 Year
  Sex: Female

DRUGS (2)
  1. ARMOUR THYROID [Suspect]
     Active Substance: THYROID, PORCINE
     Indication: Hypothyroidism
     Dosage: ONCE IN THE MORNING AND THEN LATER IN THE AFTERNOON
     Route: 048
     Dates: start: 2023
  2. ARMOUR THYROID [Suspect]
     Active Substance: THYROID, PORCINE
     Indication: Hypothyroidism
     Route: 048

REACTIONS (3)
  - Malaise [Unknown]
  - Hypothyroidism [Unknown]
  - Product odour abnormal [Recovered/Resolved]
